FAERS Safety Report 14460256 (Version 1)
Quarter: 2018Q1

REPORT INFORMATION
  Report Type: Other
  Country: US (occurrence: US)
  Receive Date: 20180130
  Receipt Date: 20180130
  Transmission Date: 20180509
  Serious: No
  Sender: FDA-Public Use
  Company Number: US-ACORDA-ACO_141498_2017

PATIENT
  Age: 66 Year
  Sex: Male
  Weight: 104.76 kg

DRUGS (7)
  1. OXYCODONE [Concomitant]
     Active Substance: OXYCODONE
     Indication: BACK PAIN
     Dosage: 10 MG, Q 4 HOURS
     Route: 048
     Dates: start: 2009
  2. COPAXONE [Concomitant]
     Active Substance: GLATIRAMER ACETATE
     Indication: MULTIPLE SCLEROSIS
     Dosage: 40 MG, 3X/WK
     Route: 058
     Dates: start: 2012
  3. GABAPENTIN. [Concomitant]
     Active Substance: GABAPENTIN
     Indication: NEUROPATHY PERIPHERAL
     Dosage: 900 MG, TID
     Route: 048
     Dates: start: 2014
  4. AMPYRA [Suspect]
     Active Substance: DALFAMPRIDINE
     Indication: PRODUCT USED FOR UNKNOWN INDICATION
     Dosage: 10 MG, BID
     Route: 048
     Dates: start: 20170505, end: 20170701
  5. CELEBREX [Concomitant]
     Active Substance: CELECOXIB
     Indication: ARTHRITIS
     Dosage: 200 MG, QD
     Route: 048
     Dates: start: 201702
  6. ATENOLOL. [Concomitant]
     Active Substance: ATENOLOL
     Indication: HEART RATE ABNORMAL
     Dosage: 10 MG, QD
     Route: 048
     Dates: start: 2015
  7. AMPYRA [Suspect]
     Active Substance: DALFAMPRIDINE
     Dosage: UNK
     Dates: start: 20170825

REACTIONS (3)
  - Gastrointestinal disorder [Recovered/Resolved]
  - Multiple sclerosis [Recovered/Resolved]
  - Malaise [Recovered/Resolved]

NARRATIVE: CASE EVENT DATE: 201707
